FAERS Safety Report 8226137-7 (Version None)
Quarter: 2012Q1

REPORT INFORMATION
  Report Type: 
  Country: None (occurrence: None)
  Receive Date: 20120319
  Receipt Date: 20120301
  Transmission Date: 20120608
  Serious: Yes (Life-Threatening, Hospitalization)
  Sender: FDA-Public Use
  Company Number: B0786015A

PATIENT
  Sex: 0

DRUGS (2)
  1. FOLIC ACID [Concomitant]
  2. CEFUROXIME SODIUM [Suspect]
     Indication: PYELONEPHRITIS
     Dosage: 1.5 GRAM(S) / THREE TIMES PER DAY / INTRA
     Route: 042
     Dates: start: 20111230, end: 20120104

REACTIONS (4)
  - HYPOKALAEMIA [None]
  - HYPOALBUMINAEMIA [None]
  - HYPOPHOSPHATAEMIA [None]
  - RENAL TUBULAR DISORDER [None]
